FAERS Safety Report 5802417-7 (Version None)
Quarter: 2008Q3

REPORT INFORMATION
  Report Type: 
  Country: None (occurrence: None)
  Receive Date: 20080707
  Receipt Date: 20080624
  Transmission Date: 20090109
  Serious: Yes (Death, Hospitalization)
  Sender: FDA-Public Use
  Company Number: US-GENENTECH-262153

PATIENT
  Sex: Female
  Weight: 46.712 kg

DRUGS (28)
  1. RITUXIMAB [Suspect]
     Indication: RHEUMATOID ARTHRITIS
     Dosage: 1000 MG, DAYS 1+15
     Route: 042
     Dates: start: 20030724, end: 20061102
  2. METHYLPREDNISOLONE [Suspect]
     Indication: RHEUMATOID ARTHRITIS
     Dosage: 100 MG, DAYS 1+15
     Route: 042
     Dates: start: 20061102, end: 20061111
  3. PREDNISONE TAB [Suspect]
     Indication: RHEUMATOID ARTHRITIS
     Dosage: UNK, DAYS 2-14
     Route: 048
  4. METHOTREXATE [Concomitant]
     Indication: RHEUMATOID ARTHRITIS
     Dosage: 20 MG, UNK
     Dates: start: 20050221
  5. FOLIC ACID [Concomitant]
     Indication: RHEUMATOID ARTHRITIS
  6. DARVOCET [Concomitant]
     Indication: RHEUMATOID ARTHRITIS
  7. DECADRON [Concomitant]
     Indication: RHEUMATOID ARTHRITIS
     Dates: start: 20070801
  8. CLINDAMYCIN [Concomitant]
     Indication: DRUG USE FOR UNKNOWN INDICATION
  9. INVANZ [Concomitant]
     Indication: DRUG USE FOR UNKNOWN INDICATION
  10. LOTRISONE [Concomitant]
     Indication: DRUG USE FOR UNKNOWN INDICATION
  11. LOVENOX [Concomitant]
     Indication: DRUG USE FOR UNKNOWN INDICATION
  12. RANITIDINE HCL [Concomitant]
     Indication: DRUG USE FOR UNKNOWN INDICATION
  13. REGLAN [Concomitant]
     Indication: DRUG USE FOR UNKNOWN INDICATION
  14. DOXYCYCLINE HCL [Concomitant]
     Indication: DRUG USE FOR UNKNOWN INDICATION
     Dates: start: 20050322
  15. ACYCLOVIR SODIUM [Concomitant]
     Indication: DRUG USE FOR UNKNOWN INDICATION
  16. PROVIGIL [Concomitant]
     Indication: DRUG USE FOR UNKNOWN INDICATION
  17. CYMBALTA [Concomitant]
     Indication: DRUG USE FOR UNKNOWN INDICATION
  18. ESTROGEN [Concomitant]
     Indication: DRUG USE FOR UNKNOWN INDICATION
  19. NEXIUM [Concomitant]
     Indication: DRUG USE FOR UNKNOWN INDICATION
  20. LEVOTHYROXINE SODIUM [Concomitant]
     Indication: DRUG USE FOR UNKNOWN INDICATION
  21. FLUCONAZOLE [Concomitant]
     Indication: DRUG USE FOR UNKNOWN INDICATION
  22. LODINE [Concomitant]
     Indication: DRUG USE FOR UNKNOWN INDICATION
  23. OXYCONTIN [Concomitant]
     Indication: DRUG USE FOR UNKNOWN INDICATION
  24. CARBOPLATIN [Suspect]
     Indication: TONSIL CANCER
     Dosage: UNK, UNK
     Dates: start: 20070821, end: 20070921
  25. ERBITUX [Suspect]
     Indication: TONSIL CANCER
  26. DIFLUCAN [Concomitant]
     Indication: DRUG USE FOR UNKNOWN INDICATION
     Dates: start: 20070201
  27. VIGAMOX [Concomitant]
     Indication: DRUG USE FOR UNKNOWN INDICATION
     Dates: start: 20060215
  28. CALCIUM/VITAMIN D [Concomitant]
     Indication: DRUG USE FOR UNKNOWN INDICATION
     Dates: start: 19990101

REACTIONS (26)
  - ABASIA [None]
  - BACTERAEMIA [None]
  - BUTTERFLY RASH [None]
  - CELLULITIS [None]
  - DEPRESSION [None]
  - DYSPHAGIA [None]
  - ENTEROCOCCAL INFECTION [None]
  - FLAT AFFECT [None]
  - GLIOMA [None]
  - GLIOSIS [None]
  - HEADACHE [None]
  - HERPES VIRUS INFECTION [None]
  - HYPOVOLAEMIA [None]
  - MENTAL STATUS CHANGES [None]
  - MUCOSAL INFLAMMATION [None]
  - PNEUMONIA [None]
  - PROGRESSIVE MULTIFOCAL LEUKOENCEPHALOPATHY [None]
  - RESPIRATORY FAILURE [None]
  - RHEUMATOID ARTHRITIS [None]
  - SINUSITIS [None]
  - STAPHYLOCOCCAL INFECTION [None]
  - SYNOVITIS [None]
  - URTICARIA [None]
  - VENOUS THROMBOSIS [None]
  - VULVOVAGINAL MYCOTIC INFECTION [None]
  - WEIGHT DECREASED [None]
